FAERS Safety Report 25667199 (Version 2)
Quarter: 2025Q4

REPORT INFORMATION
  Report Type: Report from Study
  Country: US (occurrence: US)
  Receive Date: 20250811
  Receipt Date: 20251010
  Transmission Date: 20260118
  Serious: No
  Sender: MALLINCKRODT
  Company Number: US-MALLINCKRODT-MNK202504826

PATIENT
  Sex: Female

DRUGS (1)
  1. CORTICOTROPIN [Suspect]
     Active Substance: CORTICOTROPIN
     Indication: Proteinuria
     Dosage: UNKNOWN

REACTIONS (8)
  - Lacrimation increased [Unknown]
  - Pollakiuria [Unknown]
  - Dry skin [Unknown]
  - Bowel movement irregularity [Unknown]
  - Gout [Unknown]
  - Thirst [Unknown]
  - Micturition urgency [Unknown]
  - Swelling face [Unknown]
